FAERS Safety Report 8325781-6 (Version None)
Quarter: 2012Q2

REPORT INFORMATION
  Report Type: 
  Country: None (occurrence: None)
  Receive Date: 20120501
  Receipt Date: 20120420
  Transmission Date: 20120825
  Serious: Yes (Hospitalization)
  Sender: FDA-Public Use
  Company Number: US-BIOGENIDEC-2012BI012531

PATIENT
  Age: 35 Year
  Sex: Female

DRUGS (12)
  1. SUMATRIPTAN [Concomitant]
     Indication: HEADACHE
  2. LORTAB [Concomitant]
     Indication: PAIN
  3. NAPROXEN (ALEVE) [Concomitant]
  4. XOPENEX [Concomitant]
  5. TYSABRI [Suspect]
     Indication: MULTIPLE SCLEROSIS
     Route: 042
     Dates: start: 20111202
  6. XANAX [Concomitant]
  7. TOPAMAX [Concomitant]
     Indication: PAIN
  8. VITAMIN D [Concomitant]
  9. PROVIGIL [Concomitant]
     Indication: FATIGUE
  10. TISANIDINE [Concomitant]
     Indication: MUSCLE SPASTICITY
  11. PROZAC [Concomitant]
  12. OXYBUTYNIN [Concomitant]
     Indication: NEUROGENIC BLADDER

REACTIONS (1)
  - MULTIPLE SCLEROSIS RELAPSE [None]
